FAERS Safety Report 15975172 (Version 4)
Quarter: 2019Q2

REPORT INFORMATION
  Report Type: Spontaneous
  Country: US (occurrence: US)
  Receive Date: 20190218
  Receipt Date: 20190524
  Transmission Date: 20190711
  Serious: No
  Sender: FDA-Public Use
  Company Number: US-PFIZER INC-2019067073

PATIENT
  Age: 22 Year
  Sex: Female
  Weight: 61.23 kg

DRUGS (2)
  1. CLINDAMYCIN PHOSPHATE. [Suspect]
     Active Substance: CLINDAMYCIN PHOSPHATE
     Indication: ACNE
  2. CLINDAMYCIN PHOSPHATE. [Suspect]
     Active Substance: CLINDAMYCIN PHOSPHATE
     Indication: FOLLICULITIS
     Dosage: UNK, 2X/DAY(APPLY TO AFFECTED AREA TWICE A DAY)
     Route: 061
     Dates: start: 20190205, end: 201902

REACTIONS (5)
  - Urticaria [Recovering/Resolving]
  - Pain [Unknown]
  - Drug hypersensitivity [Unknown]
  - Folliculitis [Unknown]
  - Condition aggravated [Unknown]

NARRATIVE: CASE EVENT DATE: 20190211
